FAERS Safety Report 10337456 (Version 2)
Quarter: 2014Q4

REPORT INFORMATION
  Report Type: Spontaneous
  Country: JP (occurrence: JP)
  Receive Date: 20140724
  Receipt Date: 20141027
  Transmission Date: 20150528
  Serious: No
  Sender: FDA-Public Use
  Company Number: JP-ROCHE-1438448

PATIENT
  Age: 72 Year
  Sex: Female
  Weight: 57 kg

DRUGS (2)
  1. EDIROL [Concomitant]
     Active Substance: ELDECALCITOL
     Indication: OSTEOPOROSIS
     Route: 048
     Dates: start: 20130318
  2. BONVIVA [Suspect]
     Active Substance: IBANDRONATE SODIUM
     Indication: OSTEOPOROSIS
     Route: 042
     Dates: start: 20140428

REACTIONS (5)
  - Pain in jaw [Recovered/Resolved]
  - Dysgeusia [Unknown]
  - Feeling abnormal [Recovered/Resolved]
  - Thirst [Recovered/Resolved]
  - Cough [Unknown]

NARRATIVE: CASE EVENT DATE: 20140601
